FAERS Safety Report 6266244-1 (Version None)
Quarter: 2009Q3

REPORT INFORMATION
  Report Type: 
  Country: None (occurrence: None)
  Receive Date: 20090709
  Receipt Date: 20090624
  Transmission Date: 20100115
  Serious: Yes (Other)
  Sender: FDA-Public Use
  Company Number: 09-001035

PATIENT
  Age: 54 Year
  Sex: Male

DRUGS (1)
  1. DOVONEX [Suspect]

REACTIONS (2)
  - GOUT [None]
  - OVERDOSE [None]
